FAERS Safety Report 8784959 (Version 4)
Quarter: 2013Q1

REPORT INFORMATION
  Report Type: Spontaneous
  Country: FR (occurrence: FR)
  Receive Date: 20120914
  Receipt Date: 20130308
  Transmission Date: 20140127
  Serious: Yes (Hospitalization)
  Sender: FDA-Public Use
  Company Number: FR-009507513-1209FRA004847

PATIENT
  Age: 0 Year
  Sex: Female
  Weight: 2.81 kg

DRUGS (4)
  1. ISENTRESS [Suspect]
     Dosage: 400 MG, BID
     Route: 064
     Dates: end: 20120516
  2. NORVIR [Suspect]
     Dosage: 100 MG, BID
     Route: 064
     Dates: end: 20120516
  3. INTELENCE [Suspect]
     Dosage: 200 MG, BID
     Route: 064
  4. PREZISTA [Suspect]
     Dosage: 600 MG, BID
     Route: 064
     Dates: end: 20120516

REACTIONS (4)
  - Renal disorder [Not Recovered/Not Resolved]
  - Thrombocytopenia [Recovering/Resolving]
  - Pyelocaliectasis [Unknown]
  - Foetal exposure during pregnancy [Unknown]
